FAERS Safety Report 16005769 (Version 1)
Quarter: 2019Q1

REPORT INFORMATION
  Report Type: Spontaneous
  Country: US (occurrence: US)
  Receive Date: 20190226
  Receipt Date: 20190226
  Transmission Date: 20190418
  Serious: Yes (Other)
  Sender: FDA-Public Use
  Company Number: US-TEVA-2019-US-1016551

PATIENT
  Age: 67 Year
  Sex: Female

DRUGS (1)
  1. SPIRONOLACTONE. [Suspect]
     Active Substance: SPIRONOLACTONE
     Route: 065

REACTIONS (4)
  - Chest discomfort [Unknown]
  - Product substitution issue [Unknown]
  - Oedema peripheral [Unknown]
  - Dyspnoea [Unknown]
